FAERS Safety Report 8613525-X (Version None)
Quarter: 2012Q3

REPORT INFORMATION
  Report Type: 
  Country: None (occurrence: None)
  Receive Date: 20120823
  Receipt Date: 20120807
  Transmission Date: 20120928
  Serious: Yes (Hospitalization)
  Sender: FDA-Public Use
  Company Number: JP-009507513-1208JPN003966

PATIENT

DRUGS (14)
  1. TELAVIC [Suspect]
     Indication: HEPATITIS C
     Route: 048
     Dates: start: 20120426, end: 20120711
  2. PEG-INTRON [Suspect]
     Dosage: 0.8MCG/KG/WEEK
     Route: 058
     Dates: start: 20120712
  3. REBETOL [Suspect]
     Indication: HEPATITIS C
     Route: 048
     Dates: start: 20120426, end: 20120704
  4. SOLYUGEN F [Concomitant]
     Indication: RENAL DISORDER
     Route: 042
     Dates: start: 20120501, end: 20120507
  5. TELAVIC [Suspect]
     Route: 048
     Dates: start: 20120712, end: 20120718
  6. LOXONIN [Concomitant]
     Route: 048
  7. FAMOTIDINE [Concomitant]
     Route: 048
  8. KOLANTYL [Concomitant]
     Indication: PROPHYLAXIS
     Route: 048
     Dates: start: 20120517
  9. MYSER (DIFLUPREDNATE) [Concomitant]
     Indication: FOLLICULITIS
     Route: 061
     Dates: start: 20120524
  10. PEG-INTRON [Suspect]
     Indication: HEPATITIS C
     Dosage: 1.5MCG/KG/WEEK
     Route: 058
     Dates: start: 20120426, end: 20120711
  11. REBETOL [Suspect]
     Route: 048
     Dates: start: 20120705, end: 20120711
  12. LIPOLAC [Concomitant]
     Indication: HYPERURICAEMIA
     Route: 048
     Dates: start: 20120503
  13. CLOBETASOL PROPIONATE [Concomitant]
     Indication: FOLLICULITIS
     Route: 051
     Dates: start: 20120517
  14. BETAMETHASONE SODIUM PHOSPHATE [Concomitant]
     Indication: FOLLICULITIS
     Route: 061
     Dates: start: 20120606

REACTIONS (1)
  - ANAEMIA [None]
